FAERS Safety Report 15057535 (Version 1)
Quarter: 2018Q2

REPORT INFORMATION
  Report Type: Report from Study
  Country: GR (occurrence: GR)
  Receive Date: 20180625
  Receipt Date: 20180625
  Transmission Date: 20180711
  Serious: Yes (Other)
  Sender: FDA-Public Use
  Company Number: GR-ACCORD-068589

PATIENT
  Age: 78 Year
  Sex: Female

DRUGS (5)
  1. DIGITALIS PURPUREA [Concomitant]
     Active Substance: DIGITALIS
     Indication: CARDIAC FAILURE CHRONIC
     Dosage: 0.125 MG, UNK
     Route: 048
     Dates: start: 20170609, end: 20170729
  2. FUROSEMIDE. [Concomitant]
     Active Substance: FUROSEMIDE
     Route: 048
     Dates: start: 20170126, end: 20170806
  3. BISOPROLOL [Concomitant]
     Active Substance: BISOPROLOL
     Dosage: 10 MG, QD
     Route: 048
     Dates: start: 20170123, end: 20170728
  4. ENTRESTO [Suspect]
     Active Substance: SACUBITRIL\VALSARTAN
     Indication: CARDIAC FAILURE CHRONIC
     Dosage: 50 MG (SACUBITRIL 24MG/ VALSARTAN 26 MG), BID
     Route: 048
     Dates: start: 20170310, end: 20170407
  5. EPLERENONE. [Suspect]
     Active Substance: EPLERENONE
     Indication: CARDIAC FAILURE CONGESTIVE
     Route: 048
     Dates: start: 20170609, end: 20170729

REACTIONS (2)
  - Hypotension [Recovering/Resolving]
  - Cardiac failure [Recovered/Resolved]

NARRATIVE: CASE EVENT DATE: 20170729
